FAERS Safety Report 22939902 (Version 5)
Quarter: 2024Q1

REPORT INFORMATION
  Report Type: Spontaneous
  Country: FR (occurrence: FR)
  Receive Date: 20230913
  Receipt Date: 20240321
  Transmission Date: 20240410
  Serious: Yes (Hospitalization, Other)
  Sender: FDA-Public Use
  Company Number: None

PATIENT
  Age: 61 Year
  Sex: Male

DRUGS (34)
  1. ELIQUIS [Suspect]
     Active Substance: APIXABAN
     Indication: Product used for unknown indication
     Dosage: 1 DF, BID (MORNING AND EVENING)
  2. METHYLPREDNISOLONE [Suspect]
     Active Substance: METHYLPREDNISOLONE
     Indication: Product used for unknown indication
     Dates: start: 20230309, end: 20230313
  3. PANTOPRAZOLE [Suspect]
     Active Substance: PANTOPRAZOLE
     Indication: Product used for unknown indication
     Route: 048
  4. CELLCEPT [Suspect]
     Active Substance: MYCOPHENOLATE MOFETIL
     Indication: Lung transplant rejection
     Dosage: 1 DF, BID (MORNING AND EVENING)
     Dates: start: 202304, end: 202306
  5. CELLCEPT [Suspect]
     Active Substance: MYCOPHENOLATE MOFETIL
     Dates: start: 202306
  6. OLODATEROL HYDROCHLORIDE\TIOTROPIUM BROMIDE MONOHYDRATE [Suspect]
     Active Substance: OLODATEROL HYDROCHLORIDE\TIOTROPIUM BROMIDE MONOHYDRATE
     Indication: Product used for unknown indication
     Dosage: 2 PUFFS/DAY
     Route: 055
  7. ZIEXTENZO [Suspect]
     Active Substance: PEGFILGRASTIM-BMEZ
     Indication: Product used for unknown indication
     Dates: start: 20230527
  8. PROGRAF [Suspect]
     Active Substance: TACROLIMUS
     Indication: Lung transplant rejection
     Dates: start: 202304
  9. PROGRAF [Suspect]
     Active Substance: TACROLIMUS
     Dosage: 3 MG, BID (MORNING AND EVENING)
     Dates: start: 202304
  10. PROGRAF [Suspect]
     Active Substance: TACROLIMUS
     Dosage: 2 MG, BID (MORNING AND EVENING)
  11. GANCICLOVIR [Suspect]
     Active Substance: GANCICLOVIR
     Indication: Product used for unknown indication
     Dates: start: 20230309, end: 20230313
  12. PREDNISONE [Suspect]
     Active Substance: PREDNISONE
     Indication: Lung transplant rejection
     Dates: start: 202304
  13. PREDNISONE [Suspect]
     Active Substance: PREDNISONE
     Dosage: FOR 15 DAYS
     Dates: start: 202304
  14. PREDNISONE [Suspect]
     Active Substance: PREDNISONE
     Dosage: FOR 15 DAYS
     Dates: start: 202304
  15. PREDNISONE [Suspect]
     Active Substance: PREDNISONE
     Dosage: FOR 15 DAYS
     Dates: start: 202304
  16. PREDNISONE [Suspect]
     Active Substance: PREDNISONE
     Dosage: FOR 15 DAYS
  17. AUGMENTIN [Suspect]
     Active Substance: AMOXICILLIN\CLAVULANATE POTASSIUM
     Indication: Product used for unknown indication
     Dates: start: 20230309, end: 20230313
  18. CRESTOR [Suspect]
     Active Substance: ROSUVASTATIN CALCIUM
     Indication: Product used for unknown indication
     Dosage: IN THE EVENING
     Route: 048
  19. LANSOPRAZOLE [Suspect]
     Active Substance: LANSOPRAZOLE
     Indication: Product used for unknown indication
     Dosage: EVENING
  20. SOTALOL [Suspect]
     Active Substance: SOTALOL
     Indication: Product used for unknown indication
     Dosage: 1/2 TABLET MORNING AND EVENING
  21. PENTACARINAT [Suspect]
     Active Substance: PENTAMIDINE ISETHIONATE
     Indication: Product used for unknown indication
     Dates: start: 20230712
  22. VALGANCICLOVIR HYDROCHLORIDE [Suspect]
     Active Substance: VALGANCICLOVIR HYDROCHLORIDE
     Indication: Antiviral prophylaxis
     Dosage: ON BREAK
     Dates: start: 202304, end: 20230629
  23. CERTICAN [Suspect]
     Active Substance: EVEROLIMUS
     Indication: Lung transplant rejection
     Dosage: 1.5 MG,(MORNING AND EVENING)
     Dates: start: 20230415
  24. CERTICAN [Suspect]
     Active Substance: EVEROLIMUS
     Dosage: 1 MG, BID (MORNING AND EVENING)
     Dates: start: 202304
  25. CASPOFUNGIN [Suspect]
     Active Substance: CASPOFUNGIN
     Indication: Product used for unknown indication
     Dates: start: 20230309, end: 20230313
  26. MAGNESIUM CARBONATE [Suspect]
     Active Substance: MAGNESIUM CARBONATE
     Indication: Product used for unknown indication
     Dosage: 2 SACHETS IN THE MORNING
  27. CYCLOSPORINE [Suspect]
     Active Substance: CYCLOSPORINE
     Indication: Product used for unknown indication
     Dates: start: 20230309, end: 20230313
  28. CALCIUM CARBONATE [Suspect]
     Active Substance: CALCIUM CARBONATE
     Indication: Product used for unknown indication
     Dosage: 500MG/400UI: 1 SACHET IN THE MORNING
  29. SIMULECT [Suspect]
     Active Substance: BASILIXIMAB
     Indication: Product used for unknown indication
     Dates: start: 20230309, end: 20230313
  30. LEUCOVORIN CALCIUM [Suspect]
     Active Substance: LEUCOVORIN CALCIUM
     Indication: Product used for unknown indication
     Dosage: (5 MG MONDAY, WEDNESDAY, FRIDAY)
  31. VITAMIN D3 [Suspect]
     Active Substance: CHOLECALCIFEROL
     Indication: Product used for unknown indication
     Dosage: (500MG/400UI 1 SACHET IN THE MORNING)
  32. ROSUVASTATIN [Suspect]
     Active Substance: ROSUVASTATIN
     Indication: Product used for unknown indication
     Route: 048
  33. MYCOPHENOLATE MOFETIL [Suspect]
     Active Substance: MYCOPHENOLATE MOFETIL
     Indication: Lung transplant rejection
     Dates: start: 202304
  34. MYCOPHENOLATE MOFETIL [Suspect]
     Active Substance: MYCOPHENOLATE MOFETIL
     Dates: start: 202306

REACTIONS (2)
  - Stenotrophomonas infection [Recovered/Resolved]
  - Neutropenia [Recovering/Resolving]

NARRATIVE: CASE EVENT DATE: 20230530
